FAERS Safety Report 6029389-7 (Version None)
Quarter: 2009Q1

REPORT INFORMATION
  Report Type: 
  Country: None (occurrence: None)
  Receive Date: 20090105
  Receipt Date: 20081222
  Transmission Date: 20090719
  Serious: Yes (Death)
  Sender: FDA-Public Use
  Company Number: 2008SP024615

PATIENT
  Age: 56 Year
  Sex: Male
  Weight: 57 kg

DRUGS (5)
  1. TEMODAL [Suspect]
     Indication: GLIOBLASTOMA MULTIFORME
     Dosage: 75 MG/M2; QD; PO, 150 MG/M2; QD; PO, 200 MG/M2; QD; PO
     Route: 048
     Dates: start: 20080718, end: 20080829
  2. TEMODAL [Suspect]
     Indication: GLIOBLASTOMA MULTIFORME
     Dosage: 75 MG/M2; QD; PO, 150 MG/M2; QD; PO, 200 MG/M2; QD; PO
     Route: 048
     Dates: start: 20080930, end: 20081004
  3. TEMODAL [Suspect]
     Indication: GLIOBLASTOMA MULTIFORME
     Dosage: 75 MG/M2; QD; PO, 150 MG/M2; QD; PO, 200 MG/M2; QD; PO
     Route: 048
     Dates: start: 20081028, end: 20081101
  4. INTERFERON [Suspect]
     Indication: GLIOBLASTOMA MULTIFORME
     Dosage: 3 MIU; ; INDRP
     Route: 041
     Dates: start: 20081028, end: 20081028
  5. INTERFERON [Suspect]
     Indication: GLIOBLASTOMA MULTIFORME
     Dosage: 3 MIU; ; INDRP
     Route: 041
     Dates: start: 20081031, end: 20081031

REACTIONS (4)
  - BONE MARROW FAILURE [None]
  - PYREXIA [None]
  - SEPSIS [None]
  - VOMITING [None]
